FAERS Safety Report 9370320 (Version 2)
Quarter: 2013Q3

REPORT INFORMATION
  Report Type: Spontaneous
  Country: JP (occurrence: JP)
  Receive Date: 20130626
  Receipt Date: 20130807
  Transmission Date: 20140515
  Serious: Yes (Hospitalization)
  Sender: FDA-Public Use
  Company Number: JP-BRISTOL-MYERS SQUIBB COMPANY-19035534

PATIENT
  Age: 58 Year
  Sex: Male
  Weight: 65.8 kg

DRUGS (7)
  1. ORENCIA FOR INJ 250 MG/VIAL [Suspect]
     Indication: RHEUMATOID ARTHRITIS
     Dosage: 5TH INFUSION: 15MAY13?16JAN13-15MAY13; 12APR2013
     Route: 042
     Dates: start: 20130116, end: 20130515
  2. RINDERON [Suspect]
     Indication: RHEUMATOID ARTHRITIS
     Dosage: TABS
     Route: 048
     Dates: start: 20111105
  3. HYPEN [Concomitant]
     Indication: RHEUMATOID ARTHRITIS
     Dosage: TABS
     Route: 048
     Dates: start: 20070110
  4. PROTECADIN [Concomitant]
     Indication: PROPHYLAXIS
     Dosage: TABS
     Route: 048
     Dates: start: 20070516
  5. BLOPRESS [Concomitant]
     Dosage: TABS
     Route: 048
     Dates: start: 20090217, end: 20130605
  6. FOSAMAC [Concomitant]
     Indication: PROPHYLAXIS
     Dosage: TABS
     Route: 048
     Dates: start: 20070418, end: 20130605
  7. LOXONIN [Concomitant]
     Indication: RHEUMATOID ARTHRITIS
     Dosage: TABS
     Route: 048
     Dates: start: 20071212, end: 20130605

REACTIONS (4)
  - Diverticulum intestinal haemorrhagic [Recovered/Resolved]
  - Anaemia [Recovering/Resolving]
  - Dyspnoea exertional [Unknown]
  - Shock [Unknown]
